FAERS Safety Report 6906650-2 (Version None)
Quarter: 2010Q3

REPORT INFORMATION
  Report Type: 
  Country: None (occurrence: None)
  Receive Date: 20100804
  Receipt Date: 20100727
  Transmission Date: 20110219
  Serious: Yes (Death, Hospitalization, Other)
  Sender: FDA-Public Use
  Company Number: US-PFIZER INC-2005156878

PATIENT
  Sex: Female

DRUGS (8)
  1. GABAPENTIN [Suspect]
     Indication: BIPOLAR DISORDER
     Dosage: 300 MG, UNK
     Route: 065
     Dates: start: 20031001
  2. GABAPENTIN [Suspect]
     Indication: ATTENTION DEFICIT/HYPERACTIVITY DISORDER
  3. GABAPENTIN [Suspect]
     Indication: PAIN
  4. HYDROXYZINE HCL [Suspect]
     Indication: ANXIETY
     Dosage: 25 MG, UNK
     Route: 065
     Dates: start: 20031001
  5. REMERON [Suspect]
     Indication: DEPRESSION
     Dosage: 15 MG, UNK
     Route: 065
  6. REMERON [Suspect]
     Indication: ANXIETY
  7. ULTRAM [Suspect]
     Indication: PAIN
     Dosage: 50 MG, UNK
     Route: 065
  8. ALL OTHER THERAPEUTIC PRODUCTS [Suspect]
     Indication: ILL-DEFINED DISORDER
     Dosage: UNK
     Route: 065

REACTIONS (11)
  - COMPLETED SUICIDE [None]
  - DRUG INEFFECTIVE [None]
  - INTENTIONAL OVERDOSE [None]
  - LETHARGY [None]
  - NAUSEA [None]
  - SOMNOLENCE [None]
  - SUICIDAL IDEATION [None]
  - SUICIDE ATTEMPT [None]
  - TACHYCARDIA [None]
  - TREMOR [None]
  - VOMITING [None]
